FAERS Safety Report 4554359-5 (Version None)
Quarter: 2004Q4

REPORT INFORMATION
  Report Type: 
  Country: None (occurrence: None)
  Receive Date: 20041220
  Receipt Date: 20040721
  Transmission Date: 20050328
  Serious: Yes (Other)
  Sender: FDA-Public Use
  Company Number: 04-07-1052

PATIENT
  Age: 42 Year
  Sex: Male
  Weight: 113.3993 kg

DRUGS (5)
  1. CLOZAPINE [Suspect]
     Indication: SCHIZOPHRENIA
     Dosage: 300-600 MG QD ORAL
     Route: 048
     Dates: start: 20000801
  2. RISPERDAL [Suspect]
     Dosage: 4MG BID
     Dates: start: 19950901
  3. TRAZODONE [Concomitant]
  4. EFFEXOR XR [Concomitant]
  5. NEURONTIN [Concomitant]

REACTIONS (5)
  - DIABETES MELLITUS [None]
  - DRUG INEFFECTIVE [None]
  - DRUG LEVEL INCREASED [None]
  - HYPERLIPIDAEMIA [None]
  - WEIGHT INCREASED [None]
